FAERS Safety Report 9308847 (Version 3)
Quarter: 2013Q3

REPORT INFORMATION
  Report Type: Spontaneous
  Country: US (occurrence: US)
  Receive Date: 20130524
  Receipt Date: 20130725
  Transmission Date: 20140515
  Serious: Yes (Death, Other)
  Sender: FDA-Public Use
  Company Number: US-ASTRAZENECA-2013SE35347

PATIENT
  Age: 74 Year
  Sex: Male

DRUGS (9)
  1. CAPRELSA [Suspect]
     Indication: MEDULLARY THYROID CANCER
     Route: 048
     Dates: start: 2011
  2. CARBOCAINE [Suspect]
     Indication: THYROID CANCER
     Route: 065
  3. BABY ASPIRIN [Concomitant]
     Indication: ANTICOAGULANT THERAPY
  4. FISH OLI MAXIUM STRENGTH [Concomitant]
     Route: 048
  5. GLUCOSAMINE COMPLEX [Concomitant]
     Dosage: DAILY
     Route: 048
  6. SIMVASTAIN [Concomitant]
     Route: 048
  7. TESTOSTERONE ENANTHATE [Concomitant]
     Route: 050
  8. BETA PROSTATE [Concomitant]
     Dosage: DAILY
     Route: 048
  9. VITAMIN D [Concomitant]
     Route: 048

REACTIONS (20)
  - Cerebrovascular accident [Fatal]
  - Fall [Fatal]
  - Extradural haematoma [Fatal]
  - Subdural haematoma [Fatal]
  - Cerebral haemorrhage [Fatal]
  - Carotid arteriosclerosis [Unknown]
  - Carotid artery occlusion [Unknown]
  - Electrocardiogram QT prolonged [Unknown]
  - Lymphadenopathy [Unknown]
  - Dyspnoea [Unknown]
  - Hypokalaemia [Unknown]
  - Intestinal polyp [Unknown]
  - Benign prostatic hyperplasia [Unknown]
  - Prostatic specific antigen increased [Unknown]
  - Diarrhoea [Not Recovered/Not Resolved]
  - Rash maculo-papular [Unknown]
  - Decreased appetite [Unknown]
  - Chapped lips [Not Recovered/Not Resolved]
  - Glossodynia [Not Recovered/Not Resolved]
  - Rash [Not Recovered/Not Resolved]
